FAERS Safety Report 5742361-7 (Version None)
Quarter: 2008Q2

REPORT INFORMATION
  Report Type: 
  Country: None (occurrence: None)
  Receive Date: 20080514
  Receipt Date: 20080514
  Transmission Date: 20081010
  Serious: Yes (Hospitalization)
  Sender: FDA-Public Use
  Company Number: None

PATIENT
  Sex: Female
  Weight: 91 kg

DRUGS (4)
  1. BEVACIZUMAB (RHUMAB VEGF) [Suspect]
     Dosage: 439 MG
     Dates: end: 20080408
  2. LEUCOVORIN CALCIUM [Suspect]
     Dosage: 2750 MG
     Dates: end: 20080506
  3. ELOXATIN [Suspect]
     Dosage: 275 MG
     Dates: end: 20080506
  4. FLUOROURACIL [Suspect]
     Dosage: 8160 MG
     Dates: end: 20080424

REACTIONS (5)
  - CHEST PAIN [None]
  - DIZZINESS [None]
  - DYSPNOEA [None]
  - HEADACHE [None]
  - HYPERTENSION [None]
